FAERS Safety Report 14791334 (Version 4)
Quarter: 2018Q2

REPORT INFORMATION
  Report Type: Report from Study
  Country: CN (occurrence: CN)
  Receive Date: 20180423
  Receipt Date: 20180606
  Transmission Date: 20180711
  Serious: Yes (Life-Threatening)
  Sender: FDA-Public Use
  Company Number: CN-PFIZER INC-2018159992

PATIENT
  Age: 13 Year
  Sex: Male

DRUGS (6)
  1. METHOTREXATE. [Suspect]
     Active Substance: METHOTREXATE
     Indication: ACUTE MYELOID LEUKAEMIA
     Dosage: 12.5 MG, UNK (INTRATHECAL INJECTION- 9)
     Route: 037
  2. VINCRISTINE [Concomitant]
     Active Substance: VINCRISTINE
     Indication: ACUTE MYELOID LEUKAEMIA
     Dosage: UNK
     Route: 042
  3. METHOTREXATE. [Suspect]
     Active Substance: METHOTREXATE
     Dosage: UNK
     Route: 042
  4. CYTARABINE. [Suspect]
     Active Substance: CYTARABINE
     Indication: ACUTE MYELOID LEUKAEMIA
     Dosage: 40 MG, UNK (INTRATHECAL INJECTION- 9)
     Route: 037
  5. DEXAMETHASONE. [Concomitant]
     Active Substance: DEXAMETHASONE
     Indication: ACUTE MYELOID LEUKAEMIA
     Dosage: 5 MG, UNK (INTRATHECAL INJECTIONS- 9)
     Route: 037
  6. STERILE WATER [Concomitant]
     Active Substance: WATER
     Indication: ACUTE MYELOID LEUKAEMIA
     Dosage: 2 ML, UNK (INTRATHECAL INJECTIONS- 9)
     Route: 037

REACTIONS (2)
  - Respiratory muscle weakness [Unknown]
  - Paraplegia [Recovered/Resolved]
